FAERS Safety Report 13562121 (Version 1)
Quarter: 2017Q2

REPORT INFORMATION
  Report Type: Report from Study
  Country: US (occurrence: US)
  Receive Date: 20170519
  Receipt Date: 20170519
  Transmission Date: 20170830
  Serious: Yes (Hospitalization)
  Sender: FDA-Public Use
  Company Number: US-ASTRAZENECA-2013SE71360

PATIENT
  Age: 65 Year
  Sex: Male
  Weight: 93.9 kg

DRUGS (16)
  1. ASPIRIN. [Concomitant]
     Active Substance: ASPIRIN
     Indication: CARDIAC DISORDER
     Dosage: 81 MG, UNK
     Dates: start: 20130310
  2. CLONAZEPAM. [Concomitant]
     Active Substance: CLONAZEPAM
     Indication: ANXIETY
     Dosage: 1.5 MG, UNK
     Dates: start: 20130809
  3. GLIPIZIDE. [Concomitant]
     Active Substance: GLIPIZIDE
     Indication: DIABETES MELLITUS
     Dosage: 12MAR2013  20MG,BID
     Route: 048
     Dates: start: 20070201
  4. EXENATIDE [Suspect]
     Active Substance: EXENATIDE
     Indication: TYPE 2 DIABETES MELLITUS
     Route: 058
     Dates: start: 20130423
  5. METFORMIN HCL TABS [Concomitant]
     Active Substance: METFORMIN HYDROCHLORIDE
     Indication: TYPE 2 DIABETES MELLITUS
     Dosage: 2000 MG, BID
     Route: 048
     Dates: start: 20130226
  6. ATENOLOL. [Concomitant]
     Active Substance: ATENOLOL
     Indication: BLOOD PRESSURE MEASUREMENT
     Dosage: 50 MG, UNK
     Dates: start: 20130310
  7. LISINOPRIL. [Concomitant]
     Active Substance: LISINOPRIL
     Indication: BLOOD PRESSURE MEASUREMENT
     Dosage: 40 MG, UNK
     Dates: start: 20130310
  8. QUETIAPINE. [Concomitant]
     Active Substance: QUETIAPINE
     Indication: MAJOR DEPRESSION
     Dosage: 200 MG, UNK
     Dates: start: 20130517
  9. SUCRALFATE. [Concomitant]
     Active Substance: SUCRALFATE
     Indication: GASTROOESOPHAGEAL REFLUX DISEASE
     Dosage: 2 MG, UNK
     Dates: start: 20130904
  10. TAMSULOSIN [Concomitant]
     Active Substance: TAMSULOSIN
     Indication: PROSTATIC DISORDER
     Dosage: .4 MG, UNK
     Dates: start: 20130904
  11. SILDENAFIL. [Concomitant]
     Active Substance: SILDENAFIL
     Indication: ERECTILE DYSFUNCTION
     Dosage: 50 MG, PRN50.0MG AS REQUIRED
     Dates: start: 20130308
  12. CHOLECALCIFEROL [Concomitant]
     Active Substance: CHOLECALCIFEROL
     Indication: VITAMIN SUPPLEMENTATION
     Dosage: 1DF:8000 UNITS
     Dates: start: 20130308
  13. FUROSEMIDE. [Concomitant]
     Active Substance: FUROSEMIDE
     Indication: FLUID RETENTION
     Dosage: 20 MG, UNK
     Dates: start: 20130426
  14. FERROUS SULFATE. [Concomitant]
     Active Substance: FERROUS SULFATE
     Indication: MINERAL SUPPLEMENTATION
     Dosage: 325 MG, UNK
     Dates: start: 20130308
  15. PANTOPRAZOLE [Concomitant]
     Active Substance: PANTOPRAZOLE
     Indication: GASTROOESOPHAGEAL REFLUX DISEASE
     Dosage: 80 MG, UNK
     Dates: start: 20130904
  16. PRAVASTATIN SODIUM. [Concomitant]
     Active Substance: PRAVASTATIN SODIUM
     Indication: LOW DENSITY LIPOPROTEIN INCREASED
     Dosage: 80 MG, UNK
     Dates: start: 20130310

REACTIONS (1)
  - Pancreatitis [Recovered/Resolved]

NARRATIVE: CASE EVENT DATE: 20130820
